FAERS Safety Report 12180441 (Version 2)
Quarter: 2016Q1

REPORT INFORMATION
  Report Type: Spontaneous
  Country: JP (occurrence: JP)
  Receive Date: 20160315
  Receipt Date: 20160318
  Transmission Date: 20160526
  Serious: Yes (Other)
  Sender: FDA-Public Use
  Company Number: JP-PFIZER INC-2016150566

PATIENT
  Age: 15 Year
  Sex: Male
  Weight: 60.1 kg

DRUGS (14)
  1. WARFARIN [Interacting]
     Active Substance: WARFARIN
     Dosage: 2.5 MG, 1X/DAY
     Route: 048
  2. FAMOTIDINE. [Concomitant]
     Active Substance: FAMOTIDINE
     Indication: SUPPORTIVE CARE
     Dosage: 20 MG, 2X/DAY (EVERY 12 HOURS)
     Route: 042
  3. CYCLOPHOSPHAMIDE. [Concomitant]
     Active Substance: CYCLOPHOSPHAMIDE
     Indication: RHABDOMYOSARCOMA
     Dosage: 1200 MG/M2 (1900 MG/BODY), CYCLIC ON DAY 1
     Route: 042
  4. FLUCONAZOLE. [Concomitant]
     Active Substance: FLUCONAZOLE
     Indication: INFECTION PROPHYLAXIS
     Dosage: 100 MG, 1X/DAY
     Route: 048
  5. ETOPOSIDE. [Suspect]
     Active Substance: ETOPOSIDE
     Indication: RHABDOMYOSARCOMA
     Dosage: 100 MG/M2 (160 MG/BODY), CYCLIC, ON DAYS 1-5
     Route: 042
  6. APREPITANT. [Concomitant]
     Active Substance: APREPITANT
     Indication: PROPHYLAXIS OF NAUSEA AND VOMITING
     Dosage: 125 MG, ON DAY 1
  7. APREPITANT. [Concomitant]
     Active Substance: APREPITANT
     Dosage: 80 MG, ON DAYS 2 AND 3
  8. ONDANSETRON [Concomitant]
     Active Substance: ONDANSETRON
     Indication: SUPPORTIVE CARE
     Dosage: 4 MG, 2X/DAY (EVERY 12 HOURS)
     Route: 042
  9. MESNA. [Concomitant]
     Active Substance: MESNA
     Indication: INFECTION PROPHYLAXIS
     Dosage: 600 MG, 4X/DAY (EVERY 6 HOURS, ON DAY 1 IN VDC AND DAYS 1-5 IN IE)
     Route: 042
  10. IFOSFAMIDE. [Interacting]
     Active Substance: IFOSFAMIDE
     Indication: RHABDOMYOSARCOMA
     Dosage: 1800 MG/M2 (2900 MG/BODY), CYCLIC, ON DAY 1-5
     Route: 042
  11. DOXORUBICIN [Concomitant]
     Active Substance: DOXORUBICIN
     Indication: RHABDOMYOSARCOMA
     Dosage: 37.5 MG/M2 (60 MG/BODY), CYCLIC, ON DAYS 1 AND 2)
     Route: 042
  12. DEXAMETHASONE. [Concomitant]
     Active Substance: DEXAMETHASONE
     Indication: SUPPORTIVE CARE
     Dosage: 3.3 MG, 2X/DAY (EVERY 12 HOURS)
     Route: 042
  13. WARFARIN [Interacting]
     Active Substance: WARFARIN
     Indication: CEREBRAL ARTERY OCCLUSION
     Dosage: 2 MG, DAILY
     Route: 048
  14. VINCRISTINE [Concomitant]
     Active Substance: VINCRISTINE
     Indication: RHABDOMYOSARCOMA
     Dosage: 1.5 MG/M2 (2 MG/BODY), CYCLIC ON DAY 1
     Route: 042

REACTIONS (2)
  - Drug interaction [Unknown]
  - International normalised ratio increased [Recovered/Resolved]
